FAERS Safety Report 12406653 (Version 1)
Quarter: 2016Q2

REPORT INFORMATION
  Report Type: Spontaneous
  Country: US (occurrence: None)
  Receive Date: 20160525
  Receipt Date: 20160525
  Transmission Date: 20160815
  Serious: Yes (Life-Threatening, Hospitalization)
  Sender: FDA-Public Use
  Company Number: None

PATIENT
  Age: 87 Year
  Sex: Female
  Weight: 40 kg

DRUGS (12)
  1. ASPIRIN. [Concomitant]
     Active Substance: ASPIRIN
  2. MULTIPLE VITAMINS [Concomitant]
     Active Substance: VITAMINS
  3. TOLTERODINE [Suspect]
     Active Substance: TOLTERODINE
     Indication: URINARY INCONTINENCE
     Route: 048
  4. ADVAIR DISKUS [Concomitant]
     Active Substance: FLUTICASONE PROPIONATE\SALMETEROL XINAFOATE
  5. ENALAPRIL [Concomitant]
     Active Substance: ENALAPRIL
  6. CINNAMON CITRACAL + D CLOTRIMAZOLE [Concomitant]
  7. RANITIDINE. [Concomitant]
     Active Substance: RANITIDINE
  8. CRANBERRY. [Concomitant]
     Active Substance: CRANBERRY
  9. NYSTATIN. [Concomitant]
     Active Substance: NYSTATIN
  10. TRIAMCINOLONE [Concomitant]
     Active Substance: TRIAMCINOLONE
  11. DETROL [Concomitant]
     Active Substance: TOLTERODINE TARTRATE
  12. XALATAN [Concomitant]
     Active Substance: LATANOPROST

REACTIONS (2)
  - Interstitial lung disease [None]
  - Respiratory failure [None]

NARRATIVE: CASE EVENT DATE: 20160210
